FAERS Safety Report 9315052 (Version 5)
Quarter: 2013Q3

REPORT INFORMATION
  Report Type: Spontaneous
  Country: US (occurrence: US)
  Receive Date: 20130529
  Receipt Date: 20130717
  Transmission Date: 20140515
  Serious: No
  Sender: FDA-Public Use
  Company Number: US-PFIZER INC-2013162973

PATIENT
  Age: 58 Year
  Sex: Female

DRUGS (7)
  1. PRISTIQ [Suspect]
     Indication: ANTIDEPRESSANT THERAPY
     Dosage: 100 MG, 1X/DAY
  2. PRISTIQ [Suspect]
     Dosage: 75 MG, UNK
  3. LISINOPRIL [Concomitant]
     Dosage: 20 MG, UNK
  4. HYDROCHLOROTHIAZIDE [Concomitant]
     Dosage: 20 MG, UNK
  5. XANAX [Concomitant]
     Dosage: 1 MG, AS NEEDED
  6. NAPROXEN [Concomitant]
     Dosage: 500 MG, UNK
  7. FLEXERIL [Concomitant]
     Dosage: 10 MG, UNK

REACTIONS (4)
  - Nervousness [Unknown]
  - Drug withdrawal syndrome [Unknown]
  - Feeling abnormal [Unknown]
  - Crying [Unknown]
